FAERS Safety Report 18399382 (Version 2)
Quarter: 2020Q4

REPORT INFORMATION
  Report Type: Spontaneous
  Country: US (occurrence: US)
  Receive Date: 20201019
  Receipt Date: 20201019
  Transmission Date: 20210114
  Serious: No
  Sender: FDA-Public Use
  Company Number: US-PFIZER INC-2020401935

PATIENT
  Age: 89 Year
  Sex: Female

DRUGS (1)
  1. IBRANCE [Suspect]
     Active Substance: PALBOCICLIB
     Indication: BREAST CANCER FEMALE
     Dosage: 100 MG, CYCLIC (TK (TAKE) ONE C (CAPSULE) PO (PER ORAL) QD (ONCE A DAY) X 21 D (DAYS))
     Route: 048
     Dates: start: 20200116

REACTIONS (1)
  - Nausea [Unknown]
